FAERS Safety Report 21392411 (Version 2)
Quarter: 2022Q4

REPORT INFORMATION
  Report Type: Spontaneous
  Country: MX (occurrence: MX)
  Receive Date: 20220929
  Receipt Date: 20221107
  Transmission Date: 20230112
  Serious: Yes (Other)
  Sender: FDA-Public Use
  Company Number: MX-NOVOPROD-960933

PATIENT
  Age: 59 Year
  Sex: Female
  Weight: 52.5 kg

DRUGS (5)
  1. RYBELSUS [Suspect]
     Active Substance: SEMAGLUTIDE
     Indication: Sarcopenia
     Dosage: 3 MG, QD
     Dates: start: 20220720, end: 20220827
  2. LEVOTHYROXINE SODIUM [Concomitant]
     Active Substance: LEVOTHYROXINE SODIUM
     Indication: Hypothyroidism
     Dosage: 100 MG, QD
  3. HYDROLYZED COLLAGEN [Concomitant]
     Indication: Osteomalacia
     Dosage: UNK
  4. MENAQUINONE 6 [Concomitant]
     Active Substance: MENAQUINONE 6
     Indication: Osteomalacia
     Dosage: UNK
  5. VITAMIN B3 [Concomitant]
     Active Substance: NIACIN
     Indication: Osteomalacia
     Dosage: UNK

REACTIONS (8)
  - Asthenia [Recovering/Resolving]
  - Pharyngeal inflammation [Recovered/Resolved]
  - Discouragement [Unknown]
  - Nausea [Recovered/Resolved]
  - Vomiting [Recovering/Resolving]
  - Decreased appetite [Recovering/Resolving]
  - Weight decreased [Recovering/Resolving]
  - Off label use [Recovered/Resolved]

NARRATIVE: CASE EVENT DATE: 20220720
